FAERS Safety Report 9477196 (Version 1)
Quarter: 2013Q3

REPORT INFORMATION
  Report Type: Spontaneous
  Country: US (occurrence: US)
  Receive Date: 20130826
  Receipt Date: 20130826
  Transmission Date: 20140515
  Serious: No
  Sender: FDA-Public Use
  Company Number: US-009507513-1308USA010615

PATIENT
  Sex: Female

DRUGS (2)
  1. DULERA [Suspect]
     Dosage: UNK
     Dates: start: 20130807
  2. ASMANEX TWISTHALER [Concomitant]
     Dosage: UNK

REACTIONS (3)
  - Depression [Unknown]
  - Headache [Unknown]
  - Feeling jittery [Unknown]
